FAERS Safety Report 16700343 (Version 1)
Quarter: 2019Q3

REPORT INFORMATION
  Report Type: Spontaneous
  Country: US (occurrence: US)
  Receive Date: 20190814
  Receipt Date: 20190814
  Transmission Date: 20191004
  Serious: Yes (Other)
  Sender: FDA-Public Use
  Company Number: US-009507513-1908USA003863

PATIENT
  Sex: Male

DRUGS (6)
  1. LATANOPROST. [Suspect]
     Active Substance: LATANOPROST
  2. VITAMINS (UNSPECIFIED) [Suspect]
     Active Substance: VITAMINS
     Indication: CARDIAC DISORDER
  3. ASPIRIN. [Suspect]
     Active Substance: ASPIRIN
     Indication: CARDIAC DISORDER
  4. LIPITOR [Suspect]
     Active Substance: ATORVASTATIN CALCIUM
     Indication: CARDIAC DISORDER
  5. PRINIVIL [Suspect]
     Active Substance: LISINOPRIL
     Indication: CARDIAC DISORDER
     Dosage: PILLS
  6. METOPROLOL. [Suspect]
     Active Substance: METOPROLOL
     Indication: CARDIAC DISORDER

REACTIONS (4)
  - Product storage error [Unknown]
  - Stress [Unknown]
  - Deafness unilateral [Unknown]
  - Product quality issue [Unknown]
